FAERS Safety Report 5645113-1 (Version None)
Quarter: 2008Q1

REPORT INFORMATION
  Report Type: 
  Country: None (occurrence: None)
  Receive Date: 20080229
  Receipt Date: 20080218
  Transmission Date: 20080703
  Serious: Yes (Other)
  Sender: FDA-Public Use
  Company Number: JP-ROCHE-542717

PATIENT
  Age: 6 Year
  Sex: Female
  Weight: 22 kg

DRUGS (6)
  1. TAMIFLU [Suspect]
     Route: 048
     Dates: start: 20080113, end: 20080114
  2. ASVERIN [Concomitant]
     Route: 048
     Dates: start: 20080113, end: 20080115
  3. MUCODYNE [Concomitant]
     Route: 048
     Dates: start: 20080113, end: 20080115
  4. PERIACTIN [Concomitant]
     Route: 048
     Dates: start: 20080113, end: 20080115
  5. NEUZYM [Concomitant]
     Route: 048
     Dates: start: 20080113, end: 20080115
  6. PYRINAZIN [Concomitant]
     Route: 048
     Dates: start: 20080113, end: 20080113

REACTIONS (1)
  - ABNORMAL BEHAVIOUR [None]
